FAERS Safety Report 23987162 (Version 1)
Quarter: 2024Q2

REPORT INFORMATION
  Report Type: Report from Study
  Country: US (occurrence: None)
  Receive Date: 20240618
  Receipt Date: 20240618
  Transmission Date: 20240716
  Serious: Yes (Other)
  Sender: FDA-Public Use
  Company Number: 2024A139084

PATIENT
  Sex: Female

DRUGS (1)
  1. LYNPARZA [Suspect]
     Active Substance: OLAPARIB
     Indication: Colon cancer
     Route: 048
     Dates: start: 202403

REACTIONS (5)
  - Vasculitis [Unknown]
  - Dizziness [Unknown]
  - Vomiting [Unknown]
  - Lethargy [Unknown]
  - Feeling abnormal [Unknown]
